FAERS Safety Report 10220610 (Version 1)
Quarter: 2014Q2

REPORT INFORMATION
  Report Type: Spontaneous
  Country: US (occurrence: None)
  Receive Date: 20140604
  Receipt Date: 20140604
  Transmission Date: 20141212
  Serious: Yes (Hospitalization)
  Sender: FDA-Public Use
  Company Number: 1713747-2014-99982

PATIENT
  Age: 57 Year
  Sex: Female
  Weight: 79.1 kg

DRUGS (5)
  1. SALINE, 0.9%, 1L, 12PK [Suspect]
     Indication: HAEMODIALYSIS
     Dosage: HEMODIALYSIS
     Dates: start: 20100628
  2. FMS BLOOD LINES [Concomitant]
  3. FMS DIALYZER [Concomitant]
  4. FMS HEMODIALYSIS SYSTEM [Concomitant]
  5. GRANUFLO + NATURALYTE [Concomitant]

REACTIONS (3)
  - Headache [None]
  - Hypertensive crisis [None]
  - Product quality issue [None]
